FAERS Safety Report 17504721 (Version 1)
Quarter: 2020Q1

REPORT INFORMATION
  Report Type: Report from Study
  Country: US (occurrence: US)
  Receive Date: 20200305
  Receipt Date: 20200305
  Transmission Date: 20200409
  Serious: Yes (Death)
  Sender: FDA-Public Use
  Company Number: US-ASTRAZENECA-2020SE32514

PATIENT
  Age: 19058 Day
  Sex: Male

DRUGS (6)
  1. VITAMIN C [Concomitant]
     Active Substance: ASCORBIC ACID
  2. LORAZEPAM. [Concomitant]
     Active Substance: LORAZEPAM
  3. VITAMIN B [Concomitant]
     Active Substance: VITAMIN B
  4. CALQUENCE [Suspect]
     Active Substance: ACALABRUTINIB
     Indication: NON-HODGKIN^S LYMPHOMA
     Route: 048
  5. MULTIVITAMINS [Concomitant]
     Active Substance: VITAMINS
  6. SPIRIVA [Concomitant]
     Active Substance: TIOTROPIUM BROMIDE MONOHYDRATE

REACTIONS (1)
  - Death [Fatal]

NARRATIVE: CASE EVENT DATE: 20200222
